FAERS Safety Report 17706658 (Version 1)
Quarter: 2020Q2

REPORT INFORMATION
  Report Type: Spontaneous
  Country: JP (occurrence: JP)
  Receive Date: 20200424
  Receipt Date: 20200424
  Transmission Date: 20200714
  Serious: Yes (Hospitalization, Other)
  Sender: FDA-Public Use
  Company Number: JP-JNJFOC-20200422968

PATIENT
  Age: 40 Year
  Sex: Male

DRUGS (2)
  1. REMICADE [Suspect]
     Active Substance: INFLIXIMAB
     Indication: CROHN^S DISEASE
     Route: 042
     Dates: start: 200907, end: 2012
  2. MERCAPTOPURINE RIBONUCLEOSIDE [Concomitant]
     Active Substance: THIOINOSINE
     Route: 048
     Dates: start: 201007

REACTIONS (5)
  - Arthritis [Unknown]
  - Skin exfoliation [Unknown]
  - Drug ineffective [Unknown]
  - Anastomotic ulcer perforation [Unknown]
  - Subileus [Unknown]

NARRATIVE: CASE EVENT DATE: 200909
